FAERS Safety Report 5357349-8 (Version None)
Quarter: 2007Q2

REPORT INFORMATION
  Report Type: 
  Country: None (occurrence: None)
  Receive Date: 20070614
  Receipt Date: 20070612
  Transmission Date: 20071010
  Serious: Yes (Other)
  Sender: FDA-Public Use
  Company Number: A0655277A

PATIENT
  Age: 50 Year
  Sex: Female

DRUGS (6)
  1. ADVAIR DISKUS 100/50 [Suspect]
     Indication: ASTHMA
     Dosage: 2PUFF TWICE PER DAY
     Route: 055
  2. MAXAIR [Concomitant]
  3. HYDROCHLOROTHIAZIDE [Concomitant]
  4. CLARINEX [Concomitant]
  5. NORVASC [Concomitant]
  6. NEXIUM [Concomitant]

REACTIONS (2)
  - MACULAR DEGENERATION [None]
  - OVERDOSE [None]
